FAERS Safety Report 4657099-7 (Version None)
Quarter: 2005Q2

REPORT INFORMATION
  Report Type: 
  Country: None (occurrence: None)
  Receive Date: 20050506
  Receipt Date: 20050422
  Transmission Date: 20051028
  Serious: Yes (Hospitalization, Other)
  Sender: FDA-Public Use
  Company Number: 2005064598

PATIENT
  Sex: Female
  Weight: 72.5755 kg

DRUGS (4)
  1. CELEBREX [Suspect]
     Indication: PAIN
     Dosage: ORAL
     Route: 048
  2. BEXTRA [Suspect]
     Indication: PAIN
     Dosage: ORAL
     Route: 048
  3. ROFECOXIB [Suspect]
     Indication: PAIN
     Dosage: ORAL
     Route: 048
  4. CALCIUM (CALCIUM) [Concomitant]

REACTIONS (5)
  - BODY HEIGHT DECREASED [None]
  - DYSPNOEA [None]
  - PAIN [None]
  - RASH [None]
  - TRANSIENT ISCHAEMIC ATTACK [None]
